FAERS Safety Report 5710620-X (Version None)
Quarter: 2008Q2

REPORT INFORMATION
  Report Type: 
  Country: None (occurrence: None)
  Receive Date: 20080415
  Receipt Date: 20080401
  Transmission Date: 20081010
  Serious: Yes (Death)
  Sender: FDA-Public Use
  Company Number: 2006014035

PATIENT
  Age: 22 Year
  Sex: Female

DRUGS (5)
  1. MYLANTA PLUS (MAGNESIUM HYDROXIDE, ALUMINIUM HYDROXIDE SIMETHICONE) [Suspect]
     Indication: GASTRIC DISORDER
     Dosage: ORAL
     Route: 048
     Dates: start: 20050101, end: 20060101
  2. PREDNISONE TAB [Concomitant]
  3. PROGRAF [Concomitant]
  4. OMEPRAZOLE [Concomitant]
  5. INSULIN (INSULIN) [Concomitant]

REACTIONS (4)
  - ASCITES [None]
  - HEPATITIS [None]
  - LIVER TRANSPLANT [None]
  - PHARMACEUTICAL PRODUCT COMPLAINT [None]
